FAERS Safety Report 15476521 (Version 6)
Quarter: 2018Q4

REPORT INFORMATION
  Report Type: Spontaneous
  Country: US (occurrence: US)
  Receive Date: 20181009
  Receipt Date: 20181129
  Transmission Date: 20190205
  Serious: Yes (Other)
  Sender: FDA-Public Use
  Company Number: US-AMGEN-USASP2018137409

PATIENT
  Age: 61 Year
  Sex: Female

DRUGS (5)
  1. PROLIA [Suspect]
     Active Substance: DENOSUMAB
     Indication: OSTEOPOROSIS POSTMENOPAUSAL
     Dosage: 60 MG, Q6MO
     Route: 058
     Dates: start: 201802, end: 201802
  2. ALPRAZOLAM. [Concomitant]
     Active Substance: ALPRAZOLAM
     Indication: ANXIETY
  3. XANAX [Concomitant]
     Active Substance: ALPRAZOLAM
     Dosage: UNK
  4. VALACYCLOVIR [Concomitant]
     Active Substance: VALACYCLOVIR HYDROCHLORIDE
     Dosage: UNK UNK, AS NECESSARY
  5. ALPRAZOLAM. [Concomitant]
     Active Substance: ALPRAZOLAM
     Indication: SLEEP DISORDER
     Dosage: 1 DF, QD
     Route: 048

REACTIONS (14)
  - Muscular weakness [Unknown]
  - Myalgia [Unknown]
  - Rash [Unknown]
  - Neck pain [Unknown]
  - Musculoskeletal pain [Not Recovered/Not Resolved]
  - Dyspnoea [Unknown]
  - Impaired quality of life [Unknown]
  - Back pain [Unknown]
  - Arthralgia [Unknown]
  - Bone pain [Unknown]
  - Burning sensation [Unknown]
  - Pain [Not Recovered/Not Resolved]
  - Fibromyalgia [Unknown]
  - Feeling abnormal [Unknown]

NARRATIVE: CASE EVENT DATE: 2018
